FAERS Safety Report 8857631 (Version 1)
Quarter: 2012Q4

REPORT INFORMATION
  Report Type: 
  Country: US (occurrence: US)
  Receive Date: 20121024
  Receipt Date: 20121024
  Transmission Date: 20130627
  Serious: Yes (Other)
  Sender: FDA-Public Use
  Company Number: US-ROCHE-1093198

PATIENT
  Age: 84 Year
  Sex: Male
  Weight: 73.09 kg

DRUGS (9)
  1. ZELBORAF [Suspect]
     Indication: METASTATIC MALIGNANT MELANOMA
     Dosage: 2 tabs
     Route: 048
     Dates: start: 20120717, end: 20120726
  2. ZELBORAF [Suspect]
     Dosage: 4 tabs
     Route: 048
     Dates: start: 20120821
  3. ZELBORAF [Suspect]
     Route: 048
     Dates: start: 201206, end: 20121015
  4. ASPIRIN [Concomitant]
     Indication: CARDIOVASCULAR DISORDER
     Route: 048
  5. LIPITOR [Concomitant]
     Indication: BLOOD CHOLESTEROL
     Route: 048
  6. PREDNISONE [Concomitant]
     Route: 048
  7. VITAMIN B12 [Concomitant]
     Route: 048
  8. ASTELIN [Concomitant]
     Route: 045
  9. METOPROLOL [Concomitant]
     Indication: CARDIOVASCULAR DISORDER
     Route: 048

REACTIONS (10)
  - Swelling face [Recovered/Resolved]
  - Mass [Recovered/Resolved]
  - Fatigue [Recovering/Resolving]
  - Rash [Not Recovered/Not Resolved]
  - Swelling [Recovered/Resolved]
  - Blister [Not Recovered/Not Resolved]
  - Weight decreased [Not Recovered/Not Resolved]
  - Aphagia [Unknown]
  - Asthenia [Not Recovered/Not Resolved]
  - Squamous cell carcinoma of skin [Not Recovered/Not Resolved]
